FAERS Safety Report 8590979-9 (Version None)
Quarter: 2012Q3

REPORT INFORMATION
  Report Type: 
  Country: None (occurrence: None)
  Receive Date: 20120813
  Receipt Date: 20120726
  Transmission Date: 20120928
  Serious: No
  Sender: FDA-Public Use
  Company Number: US-ASTRAZENECA-2012SE53439

PATIENT
  Age: 58 Year
  Sex: Female

DRUGS (2)
  1. SYMBICORT [Concomitant]
     Dosage: 160/4.5 MCG TWO PUFFS TWO TIMES DAY
     Route: 055
  2. OMEPRAZOLE [Suspect]
     Route: 048

REACTIONS (2)
  - DRUG HYPERSENSITIVITY [None]
  - WHEEZING [None]
